FAERS Safety Report 9551892 (Version 1)
Quarter: 2013Q3

REPORT INFORMATION
  Report Type: Spontaneous
  Country: US (occurrence: None)
  Receive Date: 20130724
  Receipt Date: 20130724
  Transmission Date: 20140515
  Serious: Yes (Other)
  Sender: FDA-Public Use
  Company Number: PHEH2012US024665

PATIENT
  Age: 68 Year
  Sex: Female
  Weight: 83 kg

DRUGS (2)
  1. GLEEVEC [Suspect]
     Indication: CHRONIC MYELOID LEUKAEMIA
     Route: 048
     Dates: start: 20121023, end: 20121213
  2. ALLOPURINOL (ALLIPURINOL) [Concomitant]

REACTIONS (6)
  - Anaemia [None]
  - Diarrhoea [None]
  - Nausea [None]
  - Oedema [None]
  - Vomiting [None]
  - Face oedema [None]
